FAERS Safety Report 9396655 (Version 2)
Quarter: 2013Q3

REPORT INFORMATION
  Report Type: Spontaneous
  Country: US (occurrence: US)
  Receive Date: 20130711
  Receipt Date: 20130825
  Transmission Date: 20140515
  Serious: No
  Sender: FDA-Public Use
  Company Number: US-B.I. PHARMACEUTICALS,INC./RIDGEFIELD-2013-BI-19875BP

PATIENT
  Age: 70 Year
  Sex: Male

DRUGS (10)
  1. COMBIVENT [Suspect]
     Indication: CHRONIC OBSTRUCTIVE PULMONARY DISEASE
     Dosage: STRENGTH: 20 MCG / 100 MCG; DAILY DOSE: 160 MCG/800 MCG
     Route: 055
     Dates: start: 201304
  2. ASPIRIN [Concomitant]
     Indication: CARDIAC DISORDER
     Dosage: 162 MCG
     Route: 048
     Dates: start: 201102
  3. MAGNESIUM [Concomitant]
     Dosage: 400 MG
     Route: 048
     Dates: start: 201102
  4. COMBIVENT MDI [Concomitant]
     Indication: CHRONIC OBSTRUCTIVE PULMONARY DISEASE
     Dosage: STRENGTH: 18 MCG/103 MCG; DAILY DOSE: 144 MCG/824 MCG
     Route: 055
     Dates: start: 201103, end: 201304
  5. DILANTIN [Concomitant]
     Indication: HEART RATE IRREGULAR
     Dosage: 400 MG
     Route: 048
     Dates: start: 201102
  6. CARVEDILOL [Concomitant]
     Indication: HEART RATE IRREGULAR
     Dosage: 12.5 MG
     Route: 048
     Dates: start: 201102
  7. CRESTOR [Concomitant]
     Indication: BLOOD CHOLESTEROL INCREASED
     Dosage: 40 MG
     Route: 048
     Dates: start: 201102
  8. ZETIA [Concomitant]
     Indication: BLOOD CHOLESTEROL INCREASED
     Dosage: 10 MG
     Route: 048
     Dates: start: 201103
  9. DIGOXIN [Concomitant]
     Indication: CARDIAC DISORDER
     Dosage: 0.25 MG
     Route: 048
     Dates: start: 201102
  10. WARFARIN [Concomitant]
     Indication: ANTICOAGULANT THERAPY
     Route: 048
     Dates: start: 201102

REACTIONS (2)
  - Prescribed overdose [Not Recovered/Not Resolved]
  - Product quality issue [Not Recovered/Not Resolved]
